FAERS Safety Report 16335683 (Version 1)
Quarter: 2019Q2

REPORT INFORMATION
  Report Type: Spontaneous
  Country: DE (occurrence: DE)
  Receive Date: 20190521
  Receipt Date: 20190521
  Transmission Date: 20190711
  Serious: Yes (Other)
  Sender: FDA-Public Use
  Company Number: DE-ALKEM LABORATORIES LIMITED-DE-ALKEM-2019-04329

PATIENT
  Sex: Male

DRUGS (2)
  1. LEVOFLOXACIN. [Suspect]
     Active Substance: LEVOFLOXACIN
     Indication: ANTIBIOTIC PROPHYLAXIS
     Dosage: THERAPEUTIC DOSES
     Route: 048
  2. CEFUROXIME AXETIL. [Suspect]
     Active Substance: CEFUROXIME AXETIL
     Indication: ANTIBIOTIC PROPHYLAXIS
     Dosage: THERAPEUTIC DOSES
     Route: 048

REACTIONS (2)
  - Drug resistance [Unknown]
  - Therapy partial responder [Unknown]
